FAERS Safety Report 4651611-X (Version None)
Quarter: 2005Q2

REPORT INFORMATION
  Report Type: 
  Country: None (occurrence: None)
  Receive Date: 20050404
  Receipt Date: 20041103
  Transmission Date: 20051028
  Serious: No
  Sender: FDA-Public Use
  Company Number: USA041183388

PATIENT
  Age: 74 Year
  Sex: Male

DRUGS (2)
  1. CYMBALTA [Suspect]
     Dates: start: 20041027, end: 20041101
  2. ZYPREXA [Suspect]
     Dates: start: 20040101, end: 20041101

REACTIONS (3)
  - DIPLOPIA [None]
  - GAIT DISTURBANCE [None]
  - NAUSEA [None]
